FAERS Safety Report 21006551 (Version 1)
Quarter: 2022Q2

REPORT INFORMATION
  Report Type: Spontaneous
  Country: US (occurrence: US)
  Receive Date: 20220624
  Receipt Date: 20220624
  Transmission Date: 20220720
  Serious: No
  Sender: FDA-Public Use
  Company Number: US-SUNOVION-2022SUN001839

PATIENT
  Age: 59 Year
  Sex: Female

DRUGS (6)
  1. LATUDA [Suspect]
     Active Substance: LURASIDONE HYDROCHLORIDE
     Indication: Schizoaffective disorder depressive type
     Dosage: 40 MG, QD
     Route: 048
  2. LATUDA [Suspect]
     Active Substance: LURASIDONE HYDROCHLORIDE
     Dosage: 20 MG (CUT THE 40MG TABLET IN HALF )
     Route: 048
     Dates: start: 20220614
  3. ZOLOFT [Concomitant]
     Active Substance: SERTRALINE HYDROCHLORIDE
     Indication: Depression
  4. ZOLOFT [Concomitant]
     Active Substance: SERTRALINE HYDROCHLORIDE
     Indication: Anxiety
  5. ABILIFY [Concomitant]
     Active Substance: ARIPIPRAZOLE
     Indication: Depression
  6. ABILIFY [Concomitant]
     Active Substance: ARIPIPRAZOLE
     Indication: Anxiety

REACTIONS (9)
  - Self-medication [Unknown]
  - Dry throat [Not Recovered/Not Resolved]
  - Feeding disorder [Not Recovered/Not Resolved]
  - Dysgeusia [Unknown]
  - Oropharyngeal pain [Not Recovered/Not Resolved]
  - Vomiting [Not Recovered/Not Resolved]
  - Diarrhoea [Not Recovered/Not Resolved]
  - Wrong technique in product usage process [Unknown]
  - Off label use [Unknown]

NARRATIVE: CASE EVENT DATE: 20220614
